FAERS Safety Report 19512712 (Version 1)
Quarter: 2021Q3

REPORT INFORMATION
  Report Type: Report from Study
  Country: AT (occurrence: AT)
  Receive Date: 20210709
  Receipt Date: 20210709
  Transmission Date: 20211014
  Serious: Yes (Hospitalization)
  Sender: FDA-Public Use
  Company Number: AT-ROCHE-2863348

PATIENT

DRUGS (66)
  1. TRASTUZUMAB. [Suspect]
     Active Substance: TRASTUZUMAB
     Dosage: ON 09/JAN/2019, THE PATIENT RECEIVED MOST RECENT DOSE OF IV TRASTUZUMAB 378 MG EVERY 3 WEEKS.
     Route: 041
     Dates: start: 20181123
  2. PERTUZUMAB. [Suspect]
     Active Substance: PERTUZUMAB
     Dosage: SOLUTION FOR INFUSION
     Route: 065
  3. TRASTUZUMAB EMTANSINE [Suspect]
     Active Substance: ADO-TRASTUZUMAB EMTANSINE
     Indication: HER2 POSITIVE BREAST CANCER
     Dosage: ON 28/JUN/2019, THE PATIENT MOST RECENT DOSE OF IV TRASTUZUMAB EMTANSINE 230.4 MG; EVERY 3 WEEK. ON
     Route: 042
     Dates: start: 20190131, end: 20190517
  4. PACLITAXEL. [Suspect]
     Active Substance: PACLITAXEL
     Dosage: 171.51 MG, 1/WEEK
     Route: 042
     Dates: start: 20190109, end: 20190109
  5. PACLITAXEL. [Suspect]
     Active Substance: PACLITAXEL
     Dosage: 147.76 MG, 1/WEEK
     Route: 042
     Dates: start: 20180522, end: 20180529
  6. PACLITAXEL. [Suspect]
     Active Substance: PACLITAXEL
     Dosage: 172.67 MG, 1/WEEK
     Route: 042
     Dates: start: 20180515, end: 20180515
  7. NERATINIB [Suspect]
     Active Substance: NERATINIB
     Dosage: 1440 MG, QD
     Route: 048
     Dates: start: 20200108, end: 20200118
  8. ABRAXANE [Suspect]
     Active Substance: PACLITAXEL
     Indication: BREAST CANCER
  9. OCTENISEPT (AUSTRIA) [Concomitant]
     Indication: ONYCHOLYSIS
     Dosage: UNK
     Route: 065
     Dates: start: 20180725
  10. TRASTUZUMAB. [Suspect]
     Active Substance: TRASTUZUMAB
     Indication: HER2 POSITIVE BREAST CANCER
     Dosage: ON 23/NOV/2018, THE PATIENT RECEIVED MOST RECENT DOSE OF IV TRASTUZUMAB.
     Route: 041
     Dates: start: 20181102
  11. TRASTUZUMAB. [Suspect]
     Active Substance: TRASTUZUMAB
     Dosage: ON 26/JUN/2018, THE PATIENT RECEIVED MOST RECENT DOSE OF IV TRASTUZUMAB 600 MG.
     Route: 041
     Dates: start: 20180328, end: 20180328
  12. TRASTUZUMAB EMTANSINE [Suspect]
     Active Substance: ADO-TRASTUZUMAB EMTANSINE
     Dosage: 230.4 MG; EVERY 3 WEEK; DOSE ON 17/MAY/2019
     Route: 042
     Dates: start: 20190131
  13. PACLITAXEL. [Suspect]
     Active Substance: PACLITAXEL
     Indication: HER2 POSITIVE BREAST CANCER
     Dosage: ON 09/APR/2018, THE PATIENT RECEIVED LAST DOSE OF IV PACLITAXEL.
     Route: 042
     Dates: start: 20180328
  14. PACLITAXEL. [Suspect]
     Active Substance: PACLITAXEL
     Dosage: 171.51 MG, 1/WEEK
     Route: 042
     Dates: start: 20181102, end: 20181123
  15. PANTOLOC [Concomitant]
     Active Substance: PANTOPRAZOLE SODIUM
     Dosage: UNK
     Route: 065
     Dates: start: 20191011
  16. BEPANTHEN [DEXPANTHENOL] [Concomitant]
     Active Substance: DEXPANTHENOL
     Indication: ONYCHOLYSIS
     Dosage: UNK
     Route: 065
     Dates: start: 20180619
  17. PERTUZUMAB. [Suspect]
     Active Substance: PERTUZUMAB
     Indication: HER2 POSITIVE BREAST CANCER
     Dosage: 420 MG EVERY 3 WEEKS
     Route: 042
     Dates: start: 20181214, end: 20190109
  18. TAXOL [Suspect]
     Active Substance: PACLITAXEL
     Indication: BREAST CANCER
     Dosage: ON 09/APR/2018, THE PATIENT RECEIVED MOST RECENT DOSE OF IV PACLITAXEL.
     Route: 042
     Dates: start: 20180328
  19. TAXOL [Suspect]
     Active Substance: PACLITAXEL
     Indication: HER2 POSITIVE BREAST CANCER
  20. PACLITAXEL. [Suspect]
     Active Substance: PACLITAXEL
     Dosage: 170.35 MG, 1/WEEK
     Route: 042
     Dates: start: 20180626, end: 20180718
  21. CAL D VITA [Concomitant]
     Indication: PRODUCT USED FOR UNKNOWN INDICATION
     Dosage: ONGOING = CHECKED
     Route: 065
     Dates: start: 20190425
  22. KYTRIL [Concomitant]
     Active Substance: GRANISETRON HYDROCHLORIDE
     Indication: PRODUCT USED FOR UNKNOWN INDICATION
     Dosage: ONGOING = NOT CHECKED
     Route: 065
     Dates: start: 20190628, end: 20190830
  23. DEXAMETHASONE. [Concomitant]
     Active Substance: DEXAMETHASONE
     Dosage: UNK
     Dates: start: 20190628, end: 20190830
  24. TRASTUZUMAB. [Suspect]
     Active Substance: TRASTUZUMAB
     Dosage: 384 MG EVERY 3 WEEKS
     Route: 042
     Dates: start: 20180515, end: 20180515
  25. TRASTUZUMAB. [Suspect]
     Active Substance: TRASTUZUMAB
     Dosage: ON 09/JAN/2019, THE PATIENT RECEIVED MOST RECENT DOSE OF IV TRASTUZUMAB 378 MG EVERY 3 WEEKS
     Route: 041
     Dates: start: 20181214
  26. TRASTUZUMAB. [Suspect]
     Active Substance: TRASTUZUMAB
     Route: 042
     Dates: start: 20191011, end: 20191011
  27. TRASTUZUMAB. [Suspect]
     Active Substance: TRASTUZUMAB
     Dosage: ON 10/OCT/2018, THE PATIENT RECEIVED MOST RECENT DOSE OF IV TRASTUZUMAB 372 MG EVERY 3 WEEKS
     Route: 041
     Dates: start: 20180626
  28. TRASTUZUMAB EMTANSINE [Suspect]
     Active Substance: ADO-TRASTUZUMAB EMTANSINE
     Route: 065
  29. CAPECITABINE. [Suspect]
     Active Substance: CAPECITABINE
     Dosage: 500 MG, OTHER
     Route: 048
     Dates: start: 20191126, end: 20191218
  30. NAB?PACLITAXEL [Suspect]
     Active Substance: PACLITAXEL
     Indication: HER2 POSITIVE BREAST CANCER
     Dosage: ON 08/MAY/2018, THE PATIENT RECEIVED MOST RECENT DOSE OF IV PACLITAXEL ALBUMIN. ON 16/JAN/2019, THE
     Route: 042
     Dates: start: 20180416
  31. PACLITAXEL. [Suspect]
     Active Substance: PACLITAXEL
     Dosage: 172.67 MG, 1/WEEK
     Route: 042
     Dates: start: 20180605, end: 20180605
  32. PACLITAXEL. [Suspect]
     Active Substance: PACLITAXEL
     Dosage: 172.67 MG, 1/WEEK
     Route: 042
     Dates: start: 20190116, end: 20190116
  33. VINORELBINE [Suspect]
     Active Substance: VINORELBINE TARTRATE
     Indication: HER2 POSITIVE BREAST CANCER
     Dosage: ON 28/OCT/2019, THE PATIENT RECEIVED MOST RECENT DOSE OF ORAL VINORELBINE.
     Route: 048
     Dates: start: 20191011
  34. NAVELBINE [Suspect]
     Active Substance: VINORELBINE TARTRATE
     Indication: HER2 POSITIVE BREAST CANCER
     Dosage: ON 28/OCT/2019, THE PATIENT RECEIVED MOST RECENT DOSE OF ORAL NAVELBINE.
     Route: 048
     Dates: start: 20191011
  35. NERATINIB [Suspect]
     Active Substance: NERATINIB
     Dosage: UNK
     Route: 065
  36. CYCLOPHOSPHAMIDE. [Suspect]
     Active Substance: CYCLOPHOSPHAMIDE
     Indication: HER2 POSITIVE BREAST CANCER
     Dosage: 2.5 MG, EVERY 0.5 WEEK
     Route: 048
  37. BEPANTHEN [DEXPANTHENOL] [Concomitant]
     Active Substance: DEXPANTHENOL
     Indication: CONJUNCTIVITIS
     Dosage: UNK
     Route: 065
     Dates: start: 20180725
  38. DEXAMETHASONE. [Concomitant]
     Active Substance: DEXAMETHASONE
     Dosage: UNK
     Route: 065
     Dates: start: 20190628, end: 20190830
  39. TRASTUZUMAB. [Suspect]
     Active Substance: TRASTUZUMAB
     Route: 042
     Dates: start: 20180423, end: 20180423
  40. METHOTREXATE. [Suspect]
     Active Substance: METHOTREXATE
     Indication: HER2 POSITIVE BREAST CANCER
     Dosage: ON 09/MAR/2020, THE PATIENT RECEIVED MOST RECENT DOSE OF ORAL METHOTREXATE 2.5 MG, EVERY 0.5 WEEK.
     Route: 048
     Dates: start: 20200219
  41. PACLITAXEL. [Suspect]
     Active Substance: PACLITAXEL
     Dosage: 177.17 MG, 1/WEEK
     Route: 042
     Dates: start: 20180612, end: 20180612
  42. PACLITAXEL. [Suspect]
     Active Substance: PACLITAXEL
     Dosage: ON 09/APR/2018, THE PATIENT RECEIVED MOST RECENT DOSE OF IV PACLITAXEL.
     Route: 042
     Dates: start: 20180328, end: 20180409
  43. VINORELBINE [Suspect]
     Active Substance: VINORELBINE TARTRATE
     Dosage: ON 25/OCT/2019 AND 28/OCT/2019, THE PATIENT RECEIVED MOST RECENT DOSE OF ORAL VINORELBINE.
     Route: 048
     Dates: start: 20191011
  44. NAVELBINE [Suspect]
     Active Substance: VINORELBINE TARTRATE
     Indication: BREAST CANCER
  45. ABRAXANE [Suspect]
     Active Substance: PACLITAXEL
     Indication: HER2 POSITIVE BREAST CANCER
     Dosage: ON 08/MAY/2018, THE PATIENT RECEIVED MOST RECENT DOSE OF IV PACLITAXEL ALBUMIN. ON 16/JAN/2019, THE
     Route: 042
     Dates: start: 20180416
  46. VINORELBINE TARTRATE. [Suspect]
     Active Substance: VINORELBINE TARTRATE
     Indication: HER2 POSITIVE BREAST CANCER
     Dosage: ON 28/OCT/2019, THE PATIENT RECEIVED MOST RECENT DOSE OF ORAL VINORELBINE TARTRATE 50 MICROGRAM.
     Route: 048
     Dates: start: 20191011
  47. TRASTUZUMAB. [Suspect]
     Active Substance: TRASTUZUMAB
     Dosage: ON 11/OCT/2019, THE PATIENT RECEIVED MOST RECENT DOSE OF IV TRASTUZUMAB.
     Route: 041
     Dates: start: 20180328
  48. PERTUZUMAB. [Suspect]
     Active Substance: PERTUZUMAB
     Dosage: 420 MG EVERY 3 WEEKS
     Route: 042
     Dates: start: 20180423, end: 20180423
  49. CAPECITABINE. [Suspect]
     Active Substance: CAPECITABINE
     Indication: HER2 POSITIVE BREAST CANCER
     Dosage: 500 MG, OTHER
     Route: 048
     Dates: start: 20191219
  50. PACLITAXEL. [Suspect]
     Active Substance: PACLITAXEL
     Dosage: 172.67 MG, 1/WEEK
     Route: 042
     Dates: start: 20190102, end: 20190102
  51. CAL D VITA [Concomitant]
     Dosage: UNK
     Route: 065
     Dates: start: 20190425
  52. OCTENISEPT (AUSTRIA) [Concomitant]
     Dosage: UNK
     Route: 065
     Dates: start: 20180725
  53. PACLITAXEL. [Suspect]
     Active Substance: PACLITAXEL
     Dosage: 171.51 MG, 1/WEEK
     Route: 042
     Dates: start: 20181207, end: 20181221
  54. PACLITAXEL. [Suspect]
     Active Substance: PACLITAXEL
     Dosage: 177.17 MG, 1/WEEK
     Route: 042
     Dates: start: 20180416, end: 20180508
  55. VINORELBINE [Suspect]
     Active Substance: VINORELBINE TARTRATE
     Dosage: 50 MG
     Route: 065
     Dates: start: 20191011
  56. ENTEROBENE [Concomitant]
     Dosage: UNK
     Dates: start: 20200108
  57. CAL D VITA [Concomitant]
     Dosage: ONGOING = CHECKED
     Dates: start: 20190425
  58. PANTOLOC [Concomitant]
     Active Substance: PANTOPRAZOLE SODIUM
     Indication: PRODUCT USED FOR UNKNOWN INDICATION
     Dosage: ONGOING = CHECKED
     Route: 065
     Dates: start: 20191011
  59. BEPANTHEN [DEXPANTHENOL] [Concomitant]
     Active Substance: DEXPANTHENOL
     Dosage: UNK
     Route: 065
     Dates: start: 20180725
  60. BEPANTHEN [DEXPANTHENOL] [Concomitant]
     Active Substance: DEXPANTHENOL
     Dosage: UNK
     Route: 065
     Dates: start: 20180619
  61. TRASTUZUMAB. [Suspect]
     Active Substance: TRASTUZUMAB
     Dosage: ON 11/OCT/2019, THE PATIENT RECEIVED MOST RECENT DOSE OF IV TRASTUZUMAB.
     Route: 042
     Dates: start: 20180328, end: 20180328
  62. PERTUZUMAB. [Suspect]
     Active Substance: PERTUZUMAB
     Dosage: ON 28/MAR/2018, THE PATIENT RECEIVED MOST RECENT DOSE OF IV PERTUZUMAB. ON 14/DEC/2018, THE PATIENT
     Route: 042
     Dates: start: 20180328
  63. NERATINIB [Suspect]
     Active Substance: NERATINIB
     Indication: HER2 POSITIVE BREAST CANCER
     Dosage: 1440 MG, QD
     Route: 048
     Dates: start: 20200119, end: 20200129
  64. CYCLOPHOSPHAMIDE. [Suspect]
     Active Substance: CYCLOPHOSPHAMIDE
     Dosage: 50 MG, QD
     Route: 048
     Dates: start: 20200219, end: 20200309
  65. XGEVA [Concomitant]
     Active Substance: DENOSUMAB
     Dosage: UNK
     Dates: start: 20191219
  66. BEPANTHEN EYE [Concomitant]
     Active Substance: DEXPANTHENOL\HYALURONATE SODIUM
     Indication: CONJUNCTIVITIS
     Dosage: UNK
     Route: 065
     Dates: start: 20180619

REACTIONS (9)
  - Breast cancer metastatic [Recovering/Resolving]
  - Tumour pain [Recovered/Resolved]
  - Overdose [Unknown]
  - Off label use [Unknown]
  - Pain of skin [Recovered/Resolved]
  - Skin lesion [Recovering/Resolving]
  - Febrile neutropenia [Recovered/Resolved]
  - Intentional product use issue [Unknown]
  - Stomatitis [Recovered/Resolved]

NARRATIVE: CASE EVENT DATE: 20190920
